FAERS Safety Report 6679076-7 (Version None)
Quarter: 2010Q2

REPORT INFORMATION
  Report Type: 
  Country: None (occurrence: None)
  Receive Date: 20100413
  Receipt Date: 20100409
  Transmission Date: 20101027
  Serious: Yes (Other)
  Sender: FDA-Public Use
  Company Number: CO-SANOFI-AVENTIS-2010SA020795

PATIENT
  Sex: Female

DRUGS (3)
  1. ENOXAPARIN SODIUM [Suspect]
     Indication: PROPHYLAXIS
     Route: 058
     Dates: start: 20100408, end: 20100408
  2. ENALAPRIL MALEATE [Concomitant]
  3. METFORMIN HCL [Concomitant]

REACTIONS (2)
  - ANGIOEDEMA [None]
  - CARDIOGENIC SHOCK [None]
